FAERS Safety Report 22333396 (Version 1)
Quarter: 2023Q2

REPORT INFORMATION
  Report Type: Spontaneous
  Country: US (occurrence: US)
  Receive Date: 20230517
  Receipt Date: 20230517
  Transmission Date: 20230722
  Serious: No
  Sender: FDA-Public Use
  Company Number: US-JNJFOC-20230524749

PATIENT
  Sex: Female

DRUGS (8)
  1. TYLENOL [Suspect]
     Active Substance: ACETAMINOPHEN
     Indication: Pyrexia
     Route: 065
  2. TYLENOL [Suspect]
     Active Substance: ACETAMINOPHEN
     Indication: Oropharyngeal pain
  3. TYLENOL [Suspect]
     Active Substance: ACETAMINOPHEN
     Indication: Dizziness
  4. TYLENOL [Suspect]
     Active Substance: ACETAMINOPHEN
     Indication: Sluggishness
  5. TYLENOL [Suspect]
     Active Substance: ACETAMINOPHEN
     Indication: Nasal congestion
  6. TYLENOL [Suspect]
     Active Substance: ACETAMINOPHEN
     Indication: Sinus disorder
  7. TYLENOL [Suspect]
     Active Substance: ACETAMINOPHEN
     Indication: Chest discomfort
  8. USTEKINUMAB [Concomitant]
     Active Substance: USTEKINUMAB
     Indication: Colitis ulcerative
     Route: 058

REACTIONS (6)
  - Pyrexia [Not Recovered/Not Resolved]
  - Dysuria [Not Recovered/Not Resolved]
  - Headache [Not Recovered/Not Resolved]
  - Oropharyngeal pain [Not Recovered/Not Resolved]
  - Product use in unapproved indication [Unknown]
  - Therapeutic response unexpected [Unknown]
